FAERS Safety Report 13477592 (Version 1)
Quarter: 2017Q2

REPORT INFORMATION
  Report Type: Spontaneous
  Country: TH (occurrence: TH)
  Receive Date: 20170425
  Receipt Date: 20170425
  Transmission Date: 20170830
  Serious: Yes (Death)
  Sender: FDA-Public Use
  Company Number: TH-PFIZER INC-2017175926

PATIENT

DRUGS (1)
  1. XALKORI [Suspect]
     Active Substance: CRIZOTINIB
     Dosage: UNK

REACTIONS (1)
  - Death [Fatal]
